FAERS Safety Report 9564027 (Version 2)
Quarter: 2013Q4

REPORT INFORMATION
  Report Type: Spontaneous
  Country: CA (occurrence: CA)
  Receive Date: 20130928
  Receipt Date: 20131003
  Transmission Date: 20140711
  Serious: Yes (Other)
  Sender: FDA-Public Use
  Company Number: CA-ROCHE-1281568

PATIENT
  Age: 19 Year
  Sex: Female

DRUGS (4)
  1. XOLAIR [Suspect]
     Indication: ASTHMA
     Route: 058
     Dates: start: 20120615
  2. BRICANYL [Concomitant]
  3. NASONEX [Concomitant]
  4. SINGULAIR [Concomitant]

REACTIONS (7)
  - Asthma [Unknown]
  - Anxiety [Not Recovered/Not Resolved]
  - Pyrexia [Unknown]
  - Injection site haemorrhage [Unknown]
  - Ear infection [Unknown]
  - Oropharyngeal pain [Unknown]
  - Cough [Unknown]
